FAERS Safety Report 25362247 (Version 2)
Quarter: 2025Q2

REPORT INFORMATION
  Report Type: Spontaneous
  Country: US (occurrence: US)
  Receive Date: 20250527
  Receipt Date: 20250612
  Transmission Date: 20250717
  Serious: Yes (Hospitalization, Disabling, Other)
  Sender: AUROBINDO
  Company Number: US-MLMSERVICE-20250506-PI497646-00271-1

PATIENT
  Age: 60 Year
  Sex: Male

DRUGS (2)
  1. PREDNISONE [Suspect]
     Active Substance: PREDNISONE
     Indication: Pyoderma gangrenosum
     Dosage: 40 MILLIGRAM, ONCE A DAY
     Route: 048
  2. PREDNISONE [Suspect]
     Active Substance: PREDNISONE
     Dosage: 80 MILLIGRAM, ONCE A DAY (INCREASED)
     Route: 048

REACTIONS (7)
  - Calciphylaxis [Recovering/Resolving]
  - Ulcer [Unknown]
  - Therapeutic product effect incomplete [Unknown]
  - Blister [Unknown]
  - Oedema peripheral [Unknown]
  - Pain in extremity [Unknown]
  - Condition aggravated [Unknown]
